FAERS Safety Report 4434019-1 (Version None)
Quarter: 2004Q3

REPORT INFORMATION
  Report Type: 
  Country: None (occurrence: None)
  Receive Date: 20040825
  Receipt Date: 20040810
  Transmission Date: 20050211
  Serious: Yes (Other)
  Sender: FDA-Public Use
  Company Number: AU_040707940

PATIENT
  Age: 59 Year
  Sex: Male

DRUGS (4)
  1. GEMZAR [Suspect]
     Indication: NON-SMALL CELL LUNG CANCER
     Dosage: 2 G OTHER
     Route: 050
  2. CISPLATIN [Concomitant]
  3. ANTIEMETICS [Concomitant]
  4. ANALGESIC [Concomitant]

REACTIONS (2)
  - EXTREMITY NECROSIS [None]
  - PAIN IN EXTREMITY [None]
